FAERS Safety Report 12439599 (Version 1)
Quarter: 2016Q2

REPORT INFORMATION
  Report Type: Spontaneous
  Country: CH (occurrence: CH)
  Receive Date: 20160606
  Receipt Date: 20160606
  Transmission Date: 20160815
  Serious: Yes (Hospitalization)
  Sender: FDA-Public Use
  Company Number: CH-TEVA-663762ISR

PATIENT
  Age: 90 Year
  Sex: Female

DRUGS (7)
  1. AMLODIPINE [Suspect]
     Active Substance: AMLODIPINE BESYLATE
     Route: 065
  2. CANDESARTAN [Suspect]
     Active Substance: CANDESARTAN
     Route: 065
  3. ASPIRIN. [Suspect]
     Active Substance: ASPIRIN
     Route: 065
  4. DIAMICRON [Suspect]
     Active Substance: GLICLAZIDE
     Route: 065
  5. TORASEMIDE [Suspect]
     Active Substance: TORSEMIDE
     Route: 065
  6. LYRICA [Suspect]
     Active Substance: PREGABALIN
     Route: 065
  7. METFIN [Suspect]
     Active Substance: METFORMIN HYDROCHLORIDE
     Route: 065

REACTIONS (1)
  - Reactive perforating collagenosis [Recovering/Resolving]

NARRATIVE: CASE EVENT DATE: 201409
